FAERS Safety Report 17023583 (Version 1)
Quarter: 2019Q4

REPORT INFORMATION
  Report Type: Spontaneous
  Country: US (occurrence: US)
  Receive Date: 20191113
  Receipt Date: 20191113
  Transmission Date: 20200122
  Serious: No
  Sender: FDA-Public Use
  Company Number: US-LUPIN PHARMACEUTICALS INC.-2019-06132

PATIENT
  Age: 72 Year
  Sex: Male

DRUGS (1)
  1. LEVOTHYROXINE SODIUM TABLETS USP, 175 MCG [Suspect]
     Active Substance: LEVOTHYROXINE SODIUM
     Indication: PRODUCT USED FOR UNKNOWN INDICATION
     Dosage: UNK
     Route: 065

REACTIONS (2)
  - Heart rate irregular [Recovered/Resolved]
  - Discomfort [Recovered/Resolved]
